FAERS Safety Report 7792635-3 (Version None)
Quarter: 2011Q4

REPORT INFORMATION
  Report Type: 
  Country: None (occurrence: None)
  Receive Date: 20111003
  Receipt Date: 20110921
  Transmission Date: 20120403
  Serious: No
  Sender: FDA-Public Use
  Company Number: US-B.I. PHARMACEUTICALS,INC./RIDGEFIELD-2011-BP-18644BP

PATIENT
  Sex: Female

DRUGS (7)
  1. BENAZEPRIL HYDROCHLORIDE [Concomitant]
     Indication: HYPERTENSION
  2. WARFARIN SODIUM [Concomitant]
  3. PRADAXA [Suspect]
     Indication: ATRIAL FIBRILLATION
     Dosage: 300 MG
     Route: 048
     Dates: start: 20101123, end: 20110810
  4. SIMVASTATIN [Concomitant]
     Indication: BLOOD CHOLESTEROL INCREASED
  5. LABETALOL HCL [Concomitant]
     Indication: HYPERTENSION
  6. FLECAINIDE ACETATE [Concomitant]
     Indication: ATRIAL FIBRILLATION
  7. AMLODIPINE [Concomitant]
     Indication: ATRIAL FIBRILLATION

REACTIONS (3)
  - DIARRHOEA [None]
  - HAEMORRHOIDS [None]
  - HAEMORRHOIDAL HAEMORRHAGE [None]
